FAERS Safety Report 8498813-2 (Version None)
Quarter: 2012Q3

REPORT INFORMATION
  Report Type: 
  Country: None (occurrence: None)
  Receive Date: 20120710
  Receipt Date: 20120627
  Transmission Date: 20120928
  Serious: Yes (Death, Hospitalization)
  Sender: FDA-Public Use
  Company Number: AU-BRISTOL-MYERS SQUIBB COMPANY-16722407

PATIENT
  Age: 71 Year
  Sex: Female
  Weight: 95 kg

DRUGS (1)
  1. IPILIMUMAB [Suspect]
     Indication: METASTATIC MALIGNANT MELANOMA
     Route: 042
     Dates: start: 20120203, end: 20120323

REACTIONS (7)
  - NEOPLASM MALIGNANT [None]
  - HYPONATRAEMIA [None]
  - VULVOVAGINAL CANDIDIASIS [None]
  - BLOOD ALBUMIN DECREASED [None]
  - HERNIA OBSTRUCTIVE [None]
  - ANAEMIA [None]
  - URINARY TRACT INFECTION [None]
